FAERS Safety Report 9136199 (Version 1)
Quarter: 2013Q1

REPORT INFORMATION
  Report Type: Spontaneous
  Country: US (occurrence: US)
  Receive Date: 20130304
  Receipt Date: 20130304
  Transmission Date: 20140127
  Serious: Yes (Death)
  Sender: FDA-Public Use
  Company Number: US-GLAXOSMITHKLINE-A1014318A

PATIENT
  Age: 74 Year
  Sex: Female

DRUGS (5)
  1. VOTRIENT [Suspect]
     Indication: THYROID CANCER
     Dosage: 800MG PER DAY
     Route: 048
     Dates: start: 20130121
  2. MAXIDE [Concomitant]
  3. VITAMIN D [Concomitant]
  4. FRAGMIN [Concomitant]
  5. SYNTHROID [Concomitant]

REACTIONS (1)
  - Death [Fatal]
